FAERS Safety Report 23376921 (Version 1)
Quarter: 2024Q1

REPORT INFORMATION
  Report Type: Spontaneous
  Country: US (occurrence: US)
  Receive Date: 20240108
  Receipt Date: 20240108
  Transmission Date: 20240410
  Serious: No
  Sender: FDA-Public Use
  Company Number: US-CHIESI-2023CHF00872

PATIENT

DRUGS (2)
  1. CUROSURF [Suspect]
     Active Substance: PORACTANT ALFA
     Indication: Meconium aspiration syndrome
     Dosage: UNK
  2. CUROSURF [Suspect]
     Active Substance: PORACTANT ALFA
     Indication: Off label use

REACTIONS (1)
  - Off label use [Unknown]
